FAERS Safety Report 7708547-7 (Version None)
Quarter: 2011Q3

REPORT INFORMATION
  Report Type: 
  Country: None (occurrence: None)
  Receive Date: 20110819
  Receipt Date: 20110809
  Transmission Date: 20111222
  Serious: Yes (Other)
  Sender: FDA-Public Use
  Company Number: 201110991

PATIENT
  Sex: Female

DRUGS (2)
  1. DILAUDID 100 MCG/ML [Concomitant]
  2. LIORESAL [Suspect]
     Indication: MUSCLE SPASTICITY
     Dosage: 87.57 MCG, DAILY, INTRATHECAL

REACTIONS (8)
  - WEIGHT INCREASED [None]
  - PAIN [None]
  - MUSCLE SPASMS [None]
  - CONDITION AGGRAVATED [None]
  - INCORRECT DOSE ADMINISTERED [None]
  - CONTUSION [None]
  - PSEUDOMENINGOCELE [None]
  - FALL [None]
